FAERS Safety Report 5156623-8 (Version None)
Quarter: 2006Q4

REPORT INFORMATION
  Report Type: 
  Country: None (occurrence: None)
  Receive Date: 20061115
  Receipt Date: 20061102
  Transmission Date: 20070319
  Serious: No
  Sender: FDA-Public Use
  Company Number: 2006-149909-NL

PATIENT
  Age: 44 Year
  Sex: Female
  Weight: 99.8 kg

DRUGS (1)
  1. NUVARING [Suspect]
     Indication: CONTRACEPTION
     Dosage: VAGINAL, 3 WEKS IN, 1 WEEK OUT
     Route: 067
     Dates: start: 20060101, end: 20061021

REACTIONS (1)
  - MYOCARDIAL INFARCTION [None]
